FAERS Safety Report 24980938 (Version 1)
Quarter: 2025Q1

REPORT INFORMATION
  Report Type: Spontaneous
  Country: US (occurrence: None)
  Receive Date: 20250217
  Receipt Date: 20250217
  Transmission Date: 20250408
  Serious: No
  Sender: FDA-CTU
  Company Number: None

PATIENT
  Age: 58 Year
  Sex: Female
  Weight: 0.0 kg

DRUGS (6)
  1. ADBRY [Suspect]
     Active Substance: TRALOKINUMAB-LDRM
     Dosage: OTHER FREQUENCY : EVERYOTHERWEEK;?
     Route: 058
     Dates: start: 20241101
  2. Diclofenac sodium external gel, Hydrocortisone cream 2.5%, Lidocaine-P [Concomitant]
  3. Tacrolimus external ointment0.03%,Triamcinolone acetonide external cre [Concomitant]
  4. calcitriol oral capsule, MVI, Hydrochlorothiazide, levothyroxine [Concomitant]
  5. MELOXICAM [Concomitant]
     Active Substance: MELOXICAM
  6. QUETIAPINE FUMARATE ORAL TABLET 200MG [Concomitant]

REACTIONS (2)
  - Pain [None]
  - Pain in extremity [None]
